FAERS Safety Report 4802276-5 (Version None)
Quarter: 2005Q4

REPORT INFORMATION
  Report Type: 
  Country: None (occurrence: None)
  Receive Date: 20051012
  Receipt Date: 20050930
  Transmission Date: 20060501
  Serious: Yes (Other)
  Sender: FDA-Public Use
  Company Number: 2005136536

PATIENT
  Age: 72 Year
  Sex: Male
  Weight: 53.5244 kg

DRUGS (3)
  1. ZITHROMAX [Suspect]
     Indication: NASOPHARYNGITIS
     Dosage: (250 MG), ORAL
     Route: 048
     Dates: start: 20050928
  2. AVANDIA [Concomitant]
  3. GLUCOTROL XL [Concomitant]

REACTIONS (2)
  - EPISTAXIS [None]
  - NO REACTION ON PREVIOUS EXPOSURE TO DRUG [None]
